FAERS Safety Report 19452570 (Version 1)
Quarter: 2021Q2

REPORT INFORMATION
  Report Type: Spontaneous
  Country: CA (occurrence: CA)
  Receive Date: 20210623
  Receipt Date: 20210623
  Transmission Date: 20210717
  Serious: Yes (Disabling, Other)
  Sender: FDA-Public Use
  Company Number: CA-SA-2021SA204468

PATIENT
  Age: 17 Year
  Sex: Male

DRUGS (10)
  1. SALBUTAMOL SULFATE [Suspect]
     Active Substance: ALBUTEROL SULFATE
     Dosage: 2 DF
     Route: 055
  2. TIOTROPIUM [Suspect]
     Active Substance: TIOTROPIUM
     Dosage: 18 UG, QD
     Route: 055
  3. TIOTROPIUM BROMIDE [Suspect]
     Active Substance: TIOTROPIUM BROMIDE
     Dosage: 2 DF, QD
     Route: 055
  4. IPRATROPIUM BROMIDE/SALBUTAMOL SULFATE [Suspect]
     Active Substance: ALBUTEROL SULFATE\IPRATROPIUM BROMIDE
     Dosage: UNK
     Route: 065
  5. HYDROXYZINE [Suspect]
     Active Substance: HYDROXYZINE HYDROCHLORIDE
     Dosage: 25 MG, BID
     Route: 048
  6. MONTELUKAST SODIUM. [Suspect]
     Active Substance: MONTELUKAST SODIUM
     Dosage: UNK
     Route: 065
  7. NUCALA [Suspect]
     Active Substance: MEPOLIZUMAB
     Indication: ASTHMA
     Dosage: 100 MG
     Route: 042
  8. DUPIXENT [Suspect]
     Active Substance: DUPILUMAB
     Indication: ECZEMA
     Dosage: 1 DF, QW
     Route: 058
  9. BUDESONIDE;FORMOTEROL FUMARATE [Suspect]
     Active Substance: BUDESONIDE\FORMOTEROL FUMARATE
     Dosage: 2 DF
     Route: 055
  10. BETAMETHASONE DIPROPIONATE;CALCIPOTRIOL [Suspect]
     Active Substance: BETAMETHASONE DIPROPIONATE\CALCIPOTRIENE
     Dosage: UNK
     Route: 065

REACTIONS (20)
  - Blood immunoglobulin E increased [Unknown]
  - Nasopharyngitis [Unknown]
  - Conjunctivitis viral [Unknown]
  - Allergy to animal [Unknown]
  - Anxiety [Unknown]
  - Hallucination [Unknown]
  - Infection [Unknown]
  - Asthma [Unknown]
  - Loss of personal independence in daily activities [Unknown]
  - Productive cough [Unknown]
  - Wheezing [Unknown]
  - Agitation [Unknown]
  - Rhinitis allergic [Unknown]
  - Seasonal allergy [Unknown]
  - Dermatitis atopic [Unknown]
  - Dyspnoea [Unknown]
  - Raynaud^s phenomenon [Unknown]
  - Eosinophil count increased [Unknown]
  - Chest discomfort [Unknown]
  - Therapeutic product effect incomplete [Unknown]
